FAERS Safety Report 8818260 (Version 1)
Quarter: 2012Q4

REPORT INFORMATION
  Report Type: 
  Country: FR (occurrence: FR)
  Receive Date: 20121001
  Receipt Date: 20121001
  Transmission Date: 20130627
  Serious: Yes (Life-Threatening)
  Sender: FDA-Public Use
  Company Number: FR-GLAXOSMITHKLINE-B0833640A

PATIENT
  Age: 50 Year
  Sex: Male

DRUGS (2)
  1. SORIATANE [Suspect]
     Indication: RASH PAPULAR
     Dosage: 30MG Per day
     Route: 048
     Dates: start: 20120319, end: 20120823
  2. DERMOVAL [Concomitant]
     Indication: RASH PAPULAR

REACTIONS (1)
  - Thrombocytopenia [Not Recovered/Not Resolved]
